FAERS Safety Report 11472557 (Version 1)
Quarter: 2015Q3

REPORT INFORMATION
  Report Type: Spontaneous
  Country: US (occurrence: US)
  Receive Date: 20150908
  Receipt Date: 20150908
  Transmission Date: 20151125
  Serious: No
  Sender: FDA-Public Use
  Company Number: US-GLAXOSMITHKLINE-US2015125620

PATIENT
  Sex: Female

DRUGS (1)
  1. BREO ELLIPTA [Suspect]
     Active Substance: FLUTICASONE FUROATE\VILANTEROL TRIFENATATE
     Indication: LUNG INFECTION
     Dosage: 1 PUFF(S), 1D
     Route: 055
     Dates: start: 201508

REACTIONS (3)
  - Off label use [Unknown]
  - Dysuria [Unknown]
  - Oropharyngeal pain [Unknown]
